FAERS Safety Report 9835702 (Version 1)
Quarter: 2014Q1

REPORT INFORMATION
  Report Type: Spontaneous
  Country: ES (occurrence: ES)
  Receive Date: 20140122
  Receipt Date: 20140122
  Transmission Date: 20141002
  Serious: Yes (Death, Other)
  Sender: FDA-Public Use
  Company Number: ES-CELGENEUS-144-50794-14012186

PATIENT
  Age: 57 Year
  Sex: Female

DRUGS (2)
  1. VIDAZA [Suspect]
     Indication: CHRONIC MYELOMONOCYTIC LEUKAEMIA
     Dosage: 75 MILLIGRAM/SQ. METER
     Route: 065
  2. GRANULOCYTE COLONY-STIMULATING FACTOR NOS [Concomitant]
     Indication: NEUTROPENIA
     Dosage: 5 MICROGRAM/KILOGRAM
     Route: 065

REACTIONS (4)
  - Necrotising fasciitis [Fatal]
  - Hypotension [Unknown]
  - Pancytopenia [Unknown]
  - Renal failure [Unknown]
